FAERS Safety Report 10027718 (Version 2)
Quarter: 2014Q2

REPORT INFORMATION
  Report Type: Spontaneous
  Country: US (occurrence: US)
  Receive Date: 20140321
  Receipt Date: 20140612
  Transmission Date: 20141212
  Serious: No
  Sender: FDA-Public Use
  Company Number: US-VERTEX PHARMACEUTICALS INC-2014-001374

PATIENT
  Sex: Female
  Weight: 85.71 kg

DRUGS (4)
  1. INCIVEK [Suspect]
     Indication: HEPATITIS C
  2. PEGASYS [Suspect]
     Indication: HEPATITIS C
  3. RIBASPHERE [Suspect]
     Indication: HEPATITIS C
  4. OTHER THERAPEUTIC PRODUCTS/SOVALDI [Suspect]
     Indication: PRODUCT USED FOR UNKNOWN INDICATION
     Route: 048

REACTIONS (3)
  - Anxiety [Unknown]
  - Anaemia [Unknown]
  - Nausea [Unknown]
